FAERS Safety Report 5610832-X (Version None)
Quarter: 2008Q1

REPORT INFORMATION
  Report Type: 
  Country: None (occurrence: None)
  Receive Date: 20080201
  Receipt Date: 20080129
  Transmission Date: 20080703
  Serious: Yes (Other)
  Sender: FDA-Public Use
  Company Number: US-ASTRAZENECA-2008UW01969

PATIENT
  Age: 61 Year
  Sex: Male

DRUGS (7)
  1. TOPROL-XL [Suspect]
     Route: 048
  2. TOPROL-XL [Suspect]
     Route: 048
     Dates: end: 20080101
  3. HYDROCHLOROTHIAZIDE [Suspect]
     Dates: end: 20080101
  4. QUINAPRIL HCL [Suspect]
     Dosage: 20 MG, 2 TABLETS IN THE MORNING AND 1 TABLET IN THE EVENING
     Dates: start: 20060301
  5. CIALIS [Concomitant]
  6. LOTRISONE [Concomitant]
  7. ALBUTEROL [Concomitant]

REACTIONS (3)
  - BLOOD PRESSURE DECREASED [None]
  - HEART RATE DECREASED [None]
  - HYPERTENSION [None]
